FAERS Safety Report 8515597-X (Version None)
Quarter: 2012Q3

REPORT INFORMATION
  Report Type: 
  Country: None (occurrence: None)
  Receive Date: 20120717
  Receipt Date: 20120710
  Transmission Date: 20120928
  Serious: Yes (Other)
  Sender: FDA-Public Use
  Company Number: PHHY2012BR060585

PATIENT
  Sex: Female

DRUGS (2)
  1. ANTIDEPRESSANTS [Concomitant]
     Dosage: UNK UKN, UNK
  2. RITALIN [Suspect]
     Dosage: UNK UKN, UNK

REACTIONS (4)
  - HAEMORRHAGE IN PREGNANCY [None]
  - ECTOPIC PREGNANCY [None]
  - ABORTION SPONTANEOUS [None]
  - MATERNAL EXPOSURE DURING PREGNANCY [None]
